FAERS Safety Report 19222722 (Version 1)
Quarter: 2021Q2

REPORT INFORMATION
  Report Type: Report from Study
  Country: MX (occurrence: MX)
  Receive Date: 20210505
  Receipt Date: 20210505
  Transmission Date: 20210717
  Serious: Yes (Other)
  Sender: FDA-Public Use
  Company Number: MX-SEATTLE GENETICS-2021SGN00812

PATIENT
  Sex: Male

DRUGS (2)
  1. BRENTUXIMAB VEDOTIN [Suspect]
     Active Substance: BRENTUXIMAB VEDOTIN
     Dosage: 80 MILLIGRAM
     Route: 042
     Dates: start: 20200327
  2. BRENTUXIMAB VEDOTIN [Suspect]
     Active Substance: BRENTUXIMAB VEDOTIN
     Indication: HODGKIN^S DISEASE
     Dosage: 128 MG
     Route: 042

REACTIONS (1)
  - Hodgkin^s disease [Unknown]
